FAERS Safety Report 8212269-6 (Version None)
Quarter: 2012Q1

REPORT INFORMATION
  Report Type: 
  Country: None (occurrence: None)
  Receive Date: 20120315
  Receipt Date: 20120309
  Transmission Date: 20120608
  Serious: Yes (Life-Threatening, Hospitalization)
  Sender: FDA-Public Use
  Company Number: FR-ROCHE-1047857

PATIENT
  Sex: Male
  Weight: 115 kg

DRUGS (2)
  1. HERCEPTIN [Suspect]
     Indication: GASTRIC CANCER
     Dosage: DAY 8 CYCLE 1
     Route: 042
     Dates: start: 20120201
  2. HERCEPTIN [Suspect]
     Dosage: DAY 1 CYCLE 2
     Route: 042
     Dates: start: 20120215

REACTIONS (3)
  - HAEMATEMESIS [None]
  - ANAEMIA [None]
  - THROMBOCYTOPENIA [None]
